FAERS Safety Report 9957027 (Version 1)
Quarter: 2014Q1

REPORT INFORMATION
  Report Type: Report from Study
  Country: US (occurrence: US)
  Receive Date: 20140304
  Receipt Date: 20140304
  Transmission Date: 20141002
  Serious: No
  Sender: FDA-Public Use
  Company Number: US-ABBVIE-13P-163-1099386-00

PATIENT
  Age: 48 Year
  Sex: Female

DRUGS (6)
  1. HUMIRA [Suspect]
     Indication: RHEUMATOID ARTHRITIS
     Dates: start: 20130530
  2. LORTAB [Concomitant]
     Indication: PAIN
  3. OXYBUTYNIN [Concomitant]
     Indication: BLADDER DISORDER
     Dosage: 5MG X 2= 10MG
  4. EIAUAIL [Concomitant]
     Indication: INSOMNIA
  5. EIAUAIL [Concomitant]
     Indication: PAIN
  6. ALEVE [Concomitant]
     Indication: PAIN

REACTIONS (5)
  - Dry mouth [Not Recovered/Not Resolved]
  - Injection site pain [Not Recovered/Not Resolved]
  - Injection site pain [Not Recovered/Not Resolved]
  - Headache [Not Recovered/Not Resolved]
  - Nausea [Not Recovered/Not Resolved]
